FAERS Safety Report 8308278-9 (Version None)
Quarter: 2012Q2

REPORT INFORMATION
  Report Type: 
  Country: None (occurrence: None)
  Receive Date: 20120424
  Receipt Date: 20120417
  Transmission Date: 20120825
  Serious: Yes (Other)
  Sender: FDA-Public Use
  Company Number: JP-JNJFOC-20120303057

PATIENT
  Age: 60 Year
  Sex: Female

DRUGS (7)
  1. RHEUMATREX [Concomitant]
     Route: 048
  2. FAMOTIDINE [Concomitant]
     Route: 048
  3. LOXONIN [Concomitant]
     Route: 048
  4. ALFAROL [Concomitant]
     Route: 048
  5. FOLIAMIN [Concomitant]
     Route: 048
  6. SIMPONI [Suspect]
     Indication: RHEUMATOID ARTHRITIS
     Route: 058
     Dates: start: 20120213
  7. PREDNISOLONE [Concomitant]
     Route: 048

REACTIONS (1)
  - RETINAL HAEMORRHAGE [None]
